FAERS Safety Report 5772490-3 (Version None)
Quarter: 2008Q2

REPORT INFORMATION
  Report Type: 
  Country: None (occurrence: None)
  Receive Date: 20080613
  Receipt Date: 20080512
  Transmission Date: 20081010
  Serious: No
  Sender: FDA-Public Use
  Company Number: US-BAYER-200713772BCC

PATIENT
  Age: 72 Year
  Sex: Male
  Weight: 86 kg

DRUGS (10)
  1. ALEVE [Suspect]
     Indication: PAIN
     Dosage: TOTAL DAILY DOSE: 880 MG  UNIT DOSE: 220 MG
     Route: 048
     Dates: start: 20071105
  2. ALEVE [Suspect]
     Dosage: TOTAL DAILY DOSE: 880 MG  UNIT DOSE: 220 MG
     Route: 048
     Dates: start: 20071114
  3. PRILOSEC [Concomitant]
  4. NEXIUM [Concomitant]
  5. SYNTHROID [Concomitant]
  6. DIOVAN [Concomitant]
  7. CELEBREX [Concomitant]
  8. ALTACE [Concomitant]
  9. LIPITOR [Concomitant]
  10. LANTUS [Concomitant]

REACTIONS (1)
  - MUSCLE SPASMS [None]
